FAERS Safety Report 6529698-9 (Version None)
Quarter: 2010Q1

REPORT INFORMATION
  Report Type: 
  Country: None (occurrence: None)
  Receive Date: 20100107
  Receipt Date: 20091230
  Transmission Date: 20100710
  Serious: Yes (Hospitalization)
  Sender: FDA-Public Use
  Company Number: GB-ROCHE-677597

PATIENT
  Sex: Male

DRUGS (2)
  1. BEVACIZUMAB [Suspect]
     Indication: RENAL CELL CARCINOMA
     Dosage: EVERY 14/7
     Route: 042
  2. INTERFERON ALFA [Suspect]
     Indication: RENAL CELL CARCINOMA
     Dosage: DOSE: 9 MU, MONDAY, WEDNESDAY AND FRI
     Route: 058

REACTIONS (1)
  - APHASIA [None]
